FAERS Safety Report 13604579 (Version 1)
Quarter: 2017Q2

REPORT INFORMATION
  Report Type: Spontaneous
  Country: US (occurrence: US)
  Receive Date: 20170602
  Receipt Date: 20170602
  Transmission Date: 20170830
  Serious: No
  Sender: FDA-Public Use
  Company Number: US-NOVEN PHARMACEUTICALS, INC.-US2016001711

PATIENT

DRUGS (2)
  1. DAYTRANA [Suspect]
     Active Substance: METHYLPHENIDATE
     Dosage: USING TWO PATCHES OF 15 MG TO MAKE A TOTAL DOSAGE OF 30 MG
     Route: 062
     Dates: start: 20160512
  2. DAYTRANA [Suspect]
     Active Substance: METHYLPHENIDATE
     Indication: FRAGILE X SYNDROME
     Dosage: 30 MG, UNK
     Route: 062
     Dates: start: 2014, end: 20160511

REACTIONS (3)
  - No adverse event [Unknown]
  - Wrong technique in product usage process [Not Recovered/Not Resolved]
  - Off label use [Unknown]

NARRATIVE: CASE EVENT DATE: 2014
